FAERS Safety Report 4699538-1 (Version None)
Quarter: 2005Q2

REPORT INFORMATION
  Report Type: 
  Country: None (occurrence: None)
  Receive Date: 20050126
  Receipt Date: 20050126
  Transmission Date: 20051028
  Serious: Yes (Other)
  Sender: FDA-Public Use
  Company Number: None

PATIENT
  Sex: Female
  Weight: 59 kg

DRUGS (2)
  1. HYDROCODONE BITARTRATE + ACETAMINOPHEN [Suspect]
     Indication: LUNG NEOPLASM MALIGNANT
     Dosage: ONE Q 6 HOURS PRN
  2. HYDROCODONE BITARTRATE + ACETAMINOPHEN [Suspect]
     Indication: PAIN
     Dosage: ONE Q 6 HOURS PRN

REACTIONS (3)
  - DRUG INTOLERANCE [None]
  - GASTROINTESTINAL DISORDER [None]
  - UNEVALUABLE EVENT [None]
